FAERS Safety Report 7125131-7 (Version None)
Quarter: 2010Q4

REPORT INFORMATION
  Report Type: 
  Country: None (occurrence: None)
  Receive Date: 20101129
  Receipt Date: 20101029
  Transmission Date: 20110411
  Serious: Yes (Other)
  Sender: FDA-Public Use
  Company Number: US-AMGEN INC.-KDL440248

PATIENT

DRUGS (1)
  1. PROCRIT [Suspect]
     Indication: ANAEMIA
     Dosage: UNK UNK, UNK
     Route: 058

REACTIONS (3)
  - HAEMOGLOBIN DECREASED [None]
  - IMMUNOSUPPRESSANT DRUG THERAPY [None]
  - PARVOVIRUS INFECTION [None]
